FAERS Safety Report 4433894-4 (Version None)
Quarter: 2004Q3

REPORT INFORMATION
  Report Type: 
  Country: None (occurrence: None)
  Receive Date: 20040824
  Receipt Date: 20040824
  Transmission Date: 20050211
  Serious: Yes (Other)
  Sender: FDA-Public Use
  Company Number: None

PATIENT
  Sex: Male

DRUGS (1)
  1. ELMIRON [Suspect]
     Dosage: ORAL
     Route: 048
     Dates: start: 20040819, end: 20040823

REACTIONS (2)
  - PARAESTHESIA [None]
  - RASH VESICULAR [None]
